FAERS Safety Report 6234326-6 (Version None)
Quarter: 2009Q2

REPORT INFORMATION
  Report Type: 
  Country: None (occurrence: None)
  Receive Date: 20090618
  Receipt Date: 20090609
  Transmission Date: 20091009
  Serious: Yes (Other)
  Sender: FDA-Public Use
  Company Number: PHHY2009BR22815

PATIENT
  Age: 69 Year
  Sex: Female
  Weight: 67 kg

DRUGS (4)
  1. EXFORGE [Suspect]
     Indication: HYPERTENSION
     Dosage: 1 DF (160/10)/ DAY
     Route: 048
     Dates: start: 20090101
  2. PURAN T4 [Concomitant]
     Dosage: 1 DF (88 UG)/ DAY FASTING
  3. CLONAZEPAM [Concomitant]
     Dosage: 1 DF (2 MG)/ DAY
     Route: 048
     Dates: start: 19990101
  4. LOSARTAN POTASSIUM AND HYDROCHLOROTHIAZIDE [Concomitant]
     Indication: HYPERTENSION
     Dosage: 320/12.5 MG/DAY

REACTIONS (4)
  - BLOOD PRESSURE INCREASED [None]
  - DYSPNOEA [None]
  - OEDEMA PERIPHERAL [None]
  - THYROIDECTOMY [None]
